FAERS Safety Report 16253282 (Version 1)
Quarter: 2019Q2

REPORT INFORMATION
  Report Type: Spontaneous
  Country: US (occurrence: US)
  Receive Date: 20190429
  Receipt Date: 20190429
  Transmission Date: 20190711
  Serious: No
  Sender: FDA-Public Use
  Company Number: US-SA-2019SA116594

PATIENT

DRUGS (2)
  1. PANTOPRAZOLE [Suspect]
     Active Substance: PANTOPRAZOLE
  2. ARAVA [Suspect]
     Active Substance: LEFLUNOMIDE

REACTIONS (2)
  - Pruritus [Unknown]
  - Drug ineffective [Unknown]
